FAERS Safety Report 7296865-9 (Version None)
Quarter: 2011Q1

REPORT INFORMATION
  Report Type: 
  Country: None (occurrence: None)
  Receive Date: 20110204
  Receipt Date: 20110125
  Transmission Date: 20110831
  Serious: Yes (Disabling)
  Sender: FDA-Public Use
  Company Number: 2011SP003578

PATIENT
  Age: 17 Year
  Sex: Female

DRUGS (1)
  1. MIRTAZAPINE [Suspect]
     Indication: DEPRESSION
     Dosage: PO
     Route: 048
     Dates: start: 20100527

REACTIONS (12)
  - HEADACHE [None]
  - NAUSEA [None]
  - TINNITUS [None]
  - FEELING ABNORMAL [None]
  - ABNORMAL DREAMS [None]
  - SLEEP DISORDER [None]
  - AGITATION [None]
  - IRRITABILITY [None]
  - EAR DISCOMFORT [None]
  - ILLUSION [None]
  - ANXIETY [None]
  - EMOTIONAL DISTRESS [None]
